FAERS Safety Report 24138000 (Version 1)
Quarter: 2024Q3

REPORT INFORMATION
  Report Type: Spontaneous
  Country: US (occurrence: US)
  Receive Date: 20240725
  Receipt Date: 20240725
  Transmission Date: 20241016
  Serious: No
  Sender: SANOFI AVENTIS
  Company Number: US-SA-SAC20240723001219

PATIENT
  Sex: Female
  Weight: 79.3 kg

DRUGS (2)
  1. DUPIXENT [Suspect]
     Active Substance: DUPILUMAB
     Indication: Product used for unknown indication
     Dosage: 300 MG QOW
     Route: 058
  2. RINVOQ [Concomitant]
     Active Substance: UPADACITINIB
     Dosage: ER 24H

REACTIONS (1)
  - Drug ineffective [Unknown]
